FAERS Safety Report 23059056 (Version 1)
Quarter: 2023Q4

REPORT INFORMATION
  Report Type: Spontaneous
  Country: BE (occurrence: BE)
  Receive Date: 20231012
  Receipt Date: 20231012
  Transmission Date: 20240109
  Serious: Yes (Other)
  Sender: FDA-Public Use
  Company Number: BE-009507513-2310BEL002858

PATIENT
  Age: 50 Year

DRUGS (2)
  1. TEMODAL [Suspect]
     Active Substance: TEMOZOLOMIDE
     Indication: Glioblastoma multiforme
     Dosage: WITH RADIO CHEMOTHERAPY
     Route: 048
     Dates: start: 20211126, end: 20220107
  2. TEMODAL [Suspect]
     Active Substance: TEMOZOLOMIDE
     Dosage: MONO THERAPY
     Dates: start: 20220207

REACTIONS (1)
  - Malignant neoplasm progression [Unknown]

NARRATIVE: CASE EVENT DATE: 20220101
